FAERS Safety Report 15309598 (Version 2)
Quarter: 2018Q3

REPORT INFORMATION
  Report Type: Spontaneous
  Country: US (occurrence: US)
  Receive Date: 20180823
  Receipt Date: 20180918
  Transmission Date: 20181010
  Serious: No
  Sender: FDA-Public Use
  Company Number: US-CELGENEUS-USA-20180500675

PATIENT
  Sex: Male
  Weight: 81.27 kg

DRUGS (2)
  1. REVLIMID [Suspect]
     Active Substance: LENALIDOMIDE
     Dosage: 2.5 MILLIGRAM
     Route: 048
     Dates: start: 201807
  2. REVLIMID [Suspect]
     Active Substance: LENALIDOMIDE
     Indication: PLASMA CELL MYELOMA
     Dosage: 2.5 MILLIGRAM
     Route: 048
     Dates: start: 20180404

REACTIONS (7)
  - Bone pain [Not Recovered/Not Resolved]
  - Fatigue [Recovering/Resolving]
  - Protein total increased [Not Recovered/Not Resolved]
  - Dizziness [Recovering/Resolving]
  - Pain [Not Recovered/Not Resolved]
  - Back pain [Recovering/Resolving]
  - Drug dose omission [Unknown]

NARRATIVE: CASE EVENT DATE: 2018
